FAERS Safety Report 5701728-3 (Version None)
Quarter: 2008Q2

REPORT INFORMATION
  Report Type: 
  Country: None (occurrence: None)
  Receive Date: 20080409
  Receipt Date: 20080409
  Transmission Date: 20081010
  Serious: No
  Sender: FDA-Public Use
  Company Number: None

PATIENT
  Age: 84 Year
  Sex: Female
  Weight: 67.1324 kg

DRUGS (1)
  1. LYRICA [Suspect]
     Indication: FIBROMYALGIA
     Dosage: 1 - 50 MG. TWICE DAILY
     Dates: start: 20080108, end: 20080208

REACTIONS (3)
  - AMNESIA [None]
  - FEELING ABNORMAL [None]
  - SOMNOLENCE [None]
